FAERS Safety Report 13190920 (Version 2)
Quarter: 2017Q1

REPORT INFORMATION
  Report Type: Report from Study
  Country: JP (occurrence: JP)
  Receive Date: 20170206
  Receipt Date: 20170310
  Transmission Date: 20170428
  Serious: Yes (Death, Hospitalization)
  Sender: FDA-Public Use
  Company Number: JP-AMGEN-JPNNI2017018703

PATIENT
  Age: 73 Year
  Sex: Female

DRUGS (4)
  1. LENALIDOMIDE [Concomitant]
     Active Substance: LENALIDOMIDE
     Dosage: UNK
     Dates: start: 20161102, end: 201611
  2. CARFILZOMIB [Suspect]
     Active Substance: CARFILZOMIB
     Dosage: UNK
     Route: 041
     Dates: end: 20161118
  3. DEXAMETHASONE. [Concomitant]
     Active Substance: DEXAMETHASONE
     Dosage: UNK
     Dates: start: 20161102, end: 201611
  4. CARFILZOMIB [Suspect]
     Active Substance: CARFILZOMIB
     Indication: PLASMA CELL MYELOMA
     Dosage: UNK
     Route: 041
     Dates: start: 20161102

REACTIONS (1)
  - Cardiac failure congestive [Fatal]

NARRATIVE: CASE EVENT DATE: 20170128
